FAERS Safety Report 4580799-4 (Version None)
Quarter: 2005Q1

REPORT INFORMATION
  Report Type: 
  Country: None (occurrence: None)
  Receive Date: 20050214
  Receipt Date: 20040604
  Transmission Date: 20050727
  Serious: No
  Sender: FDA-Public Use
  Company Number: US-GLAXOSMITHKLINE-A0513471A

PATIENT
  Age: 55 Year
  Sex: Female

DRUGS (9)
  1. LAMICTAL [Suspect]
     Indication: BIPOLAR DISORDER
     Route: 048
     Dates: start: 20040410, end: 20040430
  2. DEPAKOTE [Concomitant]
  3. ADVAIR DISKUS 100/50 [Concomitant]
  4. ALBUTEROL [Concomitant]
  5. LITHIUM [Concomitant]
  6. SINGULAIR [Concomitant]
  7. VIOXX [Concomitant]
  8. FLONASE [Concomitant]
  9. CLONAZEPAM [Concomitant]

REACTIONS (3)
  - FATIGUE [None]
  - RASH [None]
  - UVEITIS [None]
